FAERS Safety Report 8194808-7 (Version None)
Quarter: 2012Q1

REPORT INFORMATION
  Report Type: 
  Country: None (occurrence: None)
  Receive Date: 20120308
  Receipt Date: 20110407
  Transmission Date: 20120608
  Serious: No
  Sender: FDA-Public Use
  Company Number: US-GLAXOSMITHKLINE-A0921788A

PATIENT
  Age: 71 Year
  Sex: Female

DRUGS (2)
  1. NICODERM CQ [Suspect]
     Indication: EX-TOBACCO USER
     Dates: start: 20110325
  2. NICORETTE (MINT) [Suspect]
     Indication: EX-TOBACCO USER

REACTIONS (4)
  - DRUG ADMINISTRATION ERROR [None]
  - NAUSEA [None]
  - APPLICATION SITE PRURITUS [None]
  - DYSGEUSIA [None]
